FAERS Safety Report 9153102 (Version 1)
Quarter: 2013Q1

REPORT INFORMATION
  Report Type: Spontaneous
  Country: US (occurrence: None)
  Receive Date: 20130304
  Receipt Date: 20130304
  Transmission Date: 20140127
  Serious: Yes (Hospitalization)
  Sender: FDA-Public Use
  Company Number: None

PATIENT
  Age: 80 Year
  Sex: Male
  Weight: 61.4 kg

DRUGS (2)
  1. WARFARIN [Suspect]
     Indication: HEART VALVE REPLACEMENT
     Dosage: 10 MG  MON-FRI  PO
     Route: 048
  2. WARFARIN [Suspect]
     Indication: ATRIAL FIBRILLATION
     Dosage: 10 MG  MON-FRI  PO
     Route: 048

REACTIONS (7)
  - Renal failure acute [None]
  - Coagulopathy [None]
  - Anaemia [None]
  - Confusional state [None]
  - Haematuria [None]
  - Epistaxis [None]
  - Haemoptysis [None]
